FAERS Safety Report 18479571 (Version 1)
Quarter: 2020Q4

REPORT INFORMATION
  Report Type: Spontaneous
  Country: US (occurrence: US)
  Receive Date: 20201109
  Receipt Date: 20201109
  Transmission Date: 20210114
  Serious: Yes (Other)
  Sender: FDA-Public Use
  Company Number: NVSC2020US291511

PATIENT
  Age: 74 Year
  Sex: Female

DRUGS (17)
  1. RITUXIMAB. [Suspect]
     Active Substance: RITUXIMAB
     Dosage: UNK (CYCLE 2 R-DHAP)
     Route: 065
     Dates: start: 20191206
  2. METHOTREXATE. [Suspect]
     Active Substance: METHOTREXATE
     Dosage: UNK (R-HD C1)
     Route: 065
     Dates: start: 20200914
  3. CYTARABINE. [Suspect]
     Active Substance: CYTARABINE
     Dosage: 1.5 GRAM PER HOUR PER SQUARE METRE, UNKNOWN (ARA-C MOBILIZATION DOSE REDUCED TO 1.5 GM/M2 FOR AGE)
     Route: 065
     Dates: start: 20200220
  4. RITUXIMAB. [Suspect]
     Active Substance: RITUXIMAB
     Indication: DIFFUSE LARGE B-CELL LYMPHOMA
     Dosage: UNK (R-CHOP X 6 CYCLES)
     Route: 065
     Dates: start: 201903, end: 201909
  5. PREDNISONE. [Suspect]
     Active Substance: PREDNISONE
     Indication: DIFFUSE LARGE B-CELL LYMPHOMA
     Dosage: UNK (R-CHOP X 6 CYCLES)
     Route: 065
     Dates: start: 201902, end: 201909
  6. DEXAMETHASONE. [Suspect]
     Active Substance: DEXAMETHASONE
     Indication: DIFFUSE LARGE B-CELL LYMPHOMA
     Dosage: UNK (CYCLE 1 R-DHAP)
     Route: 065
     Dates: start: 20191031
  7. CISPLATIN. [Suspect]
     Active Substance: CISPLATIN
     Indication: DIFFUSE LARGE B-CELL LYMPHOMA
     Dosage: UNK (CYCLE 1 R-DHAP)
     Route: 065
     Dates: start: 20191031
  8. CISPLATIN. [Suspect]
     Active Substance: CISPLATIN
     Dosage: UNK (CYCLE 2 R-DHAP)
     Route: 065
     Dates: start: 20191206
  9. METHOTREXATE. [Suspect]
     Active Substance: METHOTREXATE
     Indication: DIFFUSE LARGE B-CELL LYMPHOMA
     Dosage: UNK (CYCLE 2 HIGH-DOSE METHOTREXATE)
     Route: 065
     Dates: start: 20191123
  10. CYTARABINE. [Suspect]
     Active Substance: CYTARABINE
     Indication: DIFFUSE LARGE B-CELL LYMPHOMA
     Dosage: UNK (CYCLE 1 R-DHAP)
     Route: 065
     Dates: start: 20191031
  11. CYTARABINE. [Suspect]
     Active Substance: CYTARABINE
     Dosage: UNK (CYCLE 2 R-DHAP)
     Route: 065
     Dates: start: 20191206
  12. RITUXIMAB. [Suspect]
     Active Substance: RITUXIMAB
     Dosage: UNK (CYCLE 1 R-DHAP)
     Route: 065
     Dates: start: 20191031
  13. DEXAMETHASONE. [Suspect]
     Active Substance: DEXAMETHASONE
     Dosage: UNK (CYCLE 2 R-DHAP)
     Route: 065
     Dates: start: 20191206
  14. CYCLOPHOSPHAMIDE. [Suspect]
     Active Substance: CYCLOPHOSPHAMIDE
     Indication: DIFFUSE LARGE B-CELL LYMPHOMA
     Dosage: UNK (R-CHOP X 6 CYCLES)
     Route: 065
     Dates: end: 201909
  15. VINCRISTINE [Suspect]
     Active Substance: VINCRISTINE
     Indication: DIFFUSE LARGE B-CELL LYMPHOMA
     Dosage: UNK (R-CHOP X 6 CYCLES)
     Route: 065
     Dates: start: 201903, end: 201909
  16. METHOTREXATE. [Suspect]
     Active Substance: METHOTREXATE
     Dosage: UNK (CYCLE 4 HIGH-DOSE METHOTREXATE)
     Route: 065
     Dates: start: 20191227
  17. DOXORUBICINE [Suspect]
     Active Substance: DOXORUBICIN
     Indication: DIFFUSE LARGE B-CELL LYMPHOMA
     Dosage: UNK (R-CHOP X 6 CYCLES)
     Route: 065
     Dates: start: 201903, end: 201909

REACTIONS (5)
  - Hilar lymphadenopathy [Unknown]
  - Asthenia [Unknown]
  - Diffuse large B-cell lymphoma [Unknown]
  - Malignant neoplasm progression [Unknown]
  - Intervertebral disc disorder [Unknown]

NARRATIVE: CASE EVENT DATE: 201910
